FAERS Safety Report 9336774 (Version 1)
Quarter: 2013Q2

REPORT INFORMATION
  Report Type: Spontaneous
  Country: JP (occurrence: JP)
  Receive Date: 20130607
  Receipt Date: 20130607
  Transmission Date: 20140414
  Serious: Yes (Other)
  Sender: FDA-Public Use
  Company Number: PHHY2012JP096213

PATIENT
  Sex: Female

DRUGS (5)
  1. CUBICIN [Suspect]
     Indication: POST PROCEDURAL INFECTION
     Dosage: 350 MG, UNK
     Route: 041
  2. CUBICIN [Suspect]
     Indication: OFF LABEL USE
  3. ALLOPURINOL [Suspect]
     Route: 048
  4. LINEZOLID [Concomitant]
  5. PIPERACILLIN/TAZOBACTAM [Concomitant]

REACTIONS (1)
  - Eosinophilic pneumonia [Recovered/Resolved]
